FAERS Safety Report 4604937-X (Version None)
Quarter: 2005Q1

REPORT INFORMATION
  Report Type: 
  Country: None (occurrence: None)
  Receive Date: 20050309
  Receipt Date: 20050309
  Transmission Date: 20050727
  Serious: No
  Sender: FDA-Public Use
  Company Number: None

PATIENT
  Age: 36 Year
  Sex: Female
  Weight: 63.5036 kg

DRUGS (5)
  1. FOSAMAX [Suspect]
     Indication: OSTEOPENIA
     Dosage: DAILY   ORAL
     Route: 048
     Dates: start: 20011101, end: 20021101
  2. ADVAIR DISKUS 100/50 [Concomitant]
  3. ZYRTEC [Concomitant]
  4. ACIPHEX [Concomitant]
  5. PROVENTIL-HFA [Concomitant]

REACTIONS (1)
  - JAW CYST [None]
